FAERS Safety Report 7460124-1 (Version None)
Quarter: 2011Q2

REPORT INFORMATION
  Report Type: 
  Country: None (occurrence: None)
  Receive Date: 20110505
  Receipt Date: 20110502
  Transmission Date: 20111010
  Serious: Yes (Other)
  Sender: FDA-Public Use
  Company Number: IT-ELI_LILLY_AND_COMPANY-IT201104004002

PATIENT
  Sex: Male

DRUGS (4)
  1. EUTIROX [Concomitant]
  2. DELTACORTENE [Concomitant]
  3. HUMALOG MIX 75/25 [Suspect]
     Dosage: 180 IU, QD
     Route: 058
     Dates: start: 20101001, end: 20110412
  4. LANTUS [Concomitant]
     Dosage: 10 IU, UNK
     Route: 058
     Dates: start: 20101001, end: 20110412

REACTIONS (2)
  - HYPOGLYCAEMIC COMA [None]
  - INCORRECT DOSE ADMINISTERED [None]
